FAERS Safety Report 5916784-7 (Version None)
Quarter: 2008Q4

REPORT INFORMATION
  Report Type: 
  Country: None (occurrence: None)
  Receive Date: 20081013
  Receipt Date: 20081010
  Transmission Date: 20090506
  Serious: Yes (Hospitalization)
  Sender: FDA-Public Use
  Company Number: CZ-SANOFI-SYNTHELABO-D01200807181

PATIENT
  Sex: Male
  Weight: 106 kg

DRUGS (7)
  1. SORTIS [Concomitant]
     Dosage: 20 MG
     Route: 065
  2. INHIBACE PLUS [Concomitant]
  3. BETALOC ZOK [Concomitant]
     Dosage: 50 MG
     Route: 065
  4. SIOFOR [Concomitant]
     Route: 065
  5. WARFARIN SODIUM [Concomitant]
     Dosage: 5 MG
     Route: 065
  6. ASA HIGH DOSE [Concomitant]
     Indication: ACUTE CORONARY SYNDROME
     Dosage: AT LEAST 300 MG D1; 300-325 MG FROM D2 TO D30
     Route: 048
     Dates: start: 20080819, end: 20080911
  7. CLOPIDOGREL [Suspect]
     Indication: ACUTE CORONARY SYNDROME
     Dosage: 300 MG (+PLACEBO) D1 FOLLOWED BY 75 MG (+PLACEBO) D2 TO D7; 75 MG FROM D8 TO 30
     Route: 048
     Dates: start: 20080819, end: 20080911

REACTIONS (1)
  - VENOUS THROMBOSIS [None]
